FAERS Safety Report 7770517-0 (Version None)
Quarter: 2011Q3

REPORT INFORMATION
  Report Type: 
  Country: None (occurrence: None)
  Receive Date: 20110922
  Receipt Date: 20110131
  Transmission Date: 20111222
  Serious: No
  Sender: FDA-Public Use
  Company Number: US-ASTRAZENECA-2011SE05321

PATIENT
  Age: 62 Year
  Sex: Female

DRUGS (9)
  1. GABAPENTIN [Concomitant]
  2. SEROQUEL XR [Suspect]
     Indication: DEPRESSION
     Route: 048
  3. AMBIEN [Concomitant]
  4. BUSPIRONE HCL [Concomitant]
  5. TRICOR [Concomitant]
  6. PROZAC [Concomitant]
  7. DARVOCET [Concomitant]
  8. FLUOXETINE [Concomitant]
  9. OMEPRAZOLE [Concomitant]

REACTIONS (3)
  - ANGER [None]
  - INSOMNIA [None]
  - NIGHTMARE [None]
